FAERS Safety Report 8002524-7 (Version None)
Quarter: 2011Q4

REPORT INFORMATION
  Report Type: 
  Country: None (occurrence: None)
  Receive Date: 20111222
  Receipt Date: 20111219
  Transmission Date: 20120403
  Serious: Yes (Hospitalization, Congenital Anomaly, Other)
  Sender: FDA-Public Use
  Company Number: US-PFIZER INC-2011160756

PATIENT
  Sex: Female
  Weight: 2 kg

DRUGS (6)
  1. ZOLOFT [Suspect]
     Indication: DEPRESSION
     Dosage: 50 MG, DAILY AS NEEDED
     Route: 064
     Dates: start: 20100330
  2. ZOLOFT [Suspect]
     Indication: ANXIETY
  3. ZOLOFT [Suspect]
     Indication: MOOD ALTERED
  4. FOLIC ACID [Concomitant]
     Dosage: ONE ORALLY DAILY
     Route: 064
  5. MULTI-VITAMINS [Concomitant]
     Dosage: UNK
     Route: 064
  6. PROMETRIUM [Concomitant]
     Dosage: UNK
     Route: 064

REACTIONS (26)
  - MATERNAL EXPOSURE TIMING UNSPECIFIED [None]
  - GASTROOESOPHAGEAL REFLUX DISEASE [None]
  - EYELID PTOSIS CONGENITAL [None]
  - BRADYCARDIA [None]
  - FAILURE TO THRIVE [None]
  - HAND DEFORMITY [None]
  - HEARING IMPAIRED [None]
  - DEFORMITY THORAX [None]
  - ATRIAL SEPTAL DEFECT [None]
  - SEPSIS [None]
  - FEEDING DISORDER NEONATAL [None]
  - HYPOTONIA NEONATAL [None]
  - SCAPHOCEPHALY [None]
  - RESPIRATORY FAILURE [None]
  - CONGESTIVE CARDIOMYOPATHY [None]
  - CYTOGENETIC ABNORMALITY [None]
  - DYSMORPHISM [None]
  - FINE MOTOR DELAY [None]
  - CYANOSIS [None]
  - HYPERBILIRUBINAEMIA [None]
  - TALIPES [None]
  - CONGENITAL TONGUE ANOMALY [None]
  - CRANIOSYNOSTOSIS [None]
  - ANAEMIA [None]
  - GROSS MOTOR DELAY [None]
  - FOETAL GROWTH RESTRICTION [None]
